FAERS Safety Report 9224658 (Version 2)
Quarter: 2013Q2

REPORT INFORMATION
  Report Type: Spontaneous
  Country: US (occurrence: None)
  Receive Date: 20130409
  Receipt Date: 20130430
  Transmission Date: 20140414
  Serious: Yes (Hospitalization)
  Sender: FDA-Public Use
  Company Number: 13AE006

PATIENT
  Age: 53 Year
  Sex: Female
  Weight: 56.7 kg

DRUGS (2)
  1. EQUATE IBUPROFEN [Suspect]
     Indication: BACK PAIN
     Dosage: 2 TABLETS BY MOUTH?
     Route: 048
     Dates: start: 20130325
  2. INHALER [Concomitant]

REACTIONS (1)
  - Anaphylactic reaction [None]
